FAERS Safety Report 8557599-3 (Version None)
Quarter: 2012Q3

REPORT INFORMATION
  Report Type: 
  Country: None (occurrence: None)
  Receive Date: 20120801
  Receipt Date: 20120801
  Transmission Date: 20120928
  Serious: Yes (Hospitalization)
  Sender: FDA-Public Use
  Company Number: FR-PFIZER INC-033-0073-M0100006

PATIENT
  Age: 51 Year
  Sex: Male

DRUGS (1)
  1. DILANTIN [Suspect]
     Indication: EPILEPSY
     Dosage: 500 MG, 1X/DAY
     Route: 042
     Dates: start: 19980710, end: 19980710

REACTIONS (2)
  - VERTIGO [None]
  - CEREBELLAR SYNDROME [None]
